FAERS Safety Report 9733559 (Version 2)
Quarter: 2013Q4

REPORT INFORMATION
  Report Type: Spontaneous
  Country: JP (occurrence: JP)
  Receive Date: 20131205
  Receipt Date: 20131205
  Transmission Date: 20140711
  Serious: Yes (Other)
  Sender: FDA-Public Use
  Company Number: JP-OTSUKA-JP-2013-15106

PATIENT
  Age: 58 Year
  Sex: Male

DRUGS (2)
  1. SAMSCA [Suspect]
     Indication: HEPATIC CIRRHOSIS
     Dosage: 3.75 MG MILLIGRAM(S), DAILY DOSE
     Route: 048
  2. LASIX [Concomitant]
     Dosage: 40 MG MILLIGRAM(S), DAILY DOSE
     Route: 048

REACTIONS (3)
  - Hypersensitivity [Unknown]
  - Pyrexia [Recovered/Resolved]
  - Diarrhoea [Recovered/Resolved]
